FAERS Safety Report 19922841 (Version 1)
Quarter: 2021Q4

REPORT INFORMATION
  Report Type: Spontaneous
  Country: US (occurrence: US)
  Receive Date: 20211005
  Receipt Date: 20211005
  Transmission Date: 20220303
  Serious: No
  Sender: FDA-Public Use
  Company Number: None

PATIENT
  Age: 69 Year
  Sex: Female
  Weight: 69.3 kg

DRUGS (7)
  1. CYCLOPHOSPHAMIDE [Suspect]
     Active Substance: CYCLOPHOSPHAMIDE
     Indication: Breast cancer
     Dosage: ?          OTHER FREQUENCY:QD FOR 14/21 DAYS;
     Route: 048
     Dates: start: 20210715, end: 20211005
  2. CAPECITABINE [Suspect]
     Active Substance: CAPECITABINE
     Indication: Breast cancer
     Dosage: ?          OTHER FREQUENCY:BID FOR 14/21 DAYS;
     Route: 048
     Dates: start: 20210715, end: 20211005
  3. CAPECITABINE [Concomitant]
     Active Substance: CAPECITABINE
  4. Carvedilol 50mg [Concomitant]
  5. OXYCODONE [Concomitant]
     Active Substance: OXYCODONE
  6. Prochlorperazine 10mg [Concomitant]
  7. ONDANSETRON [Concomitant]
     Active Substance: ONDANSETRON

REACTIONS (1)
  - Disease progression [None]

NARRATIVE: CASE EVENT DATE: 20211005
